FAERS Safety Report 18356845 (Version 1)
Quarter: 2020Q4

REPORT INFORMATION
  Report Type: Spontaneous
  Country: BR (occurrence: BR)
  Receive Date: 20201007
  Receipt Date: 20201007
  Transmission Date: 20210114
  Serious: Yes (Death, Other)
  Sender: FDA-Public Use
  Company Number: BR-ASTELLAS-2020US035434

PATIENT
  Age: 19 Month
  Sex: Female

DRUGS (13)
  1. AMBISOME [Suspect]
     Active Substance: AMPHOTERICIN B
     Dosage: 11.5 MG/KG, QD
     Route: 065
  2. FLUCONAZOLE. [Concomitant]
     Active Substance: FLUCONAZOLE
     Indication: PRODUCT USED FOR UNKNOWN INDICATION
     Dosage: UNK UNK, UNKNOWN FREQ.
     Route: 065
  3. AMBISOME [Suspect]
     Active Substance: AMPHOTERICIN B
     Dosage: 4.5 MG/KG, QD
     Route: 065
  4. AMOXICILLIN. [Concomitant]
     Active Substance: AMOXICILLIN
     Indication: PRODUCT USED FOR UNKNOWN INDICATION
     Dosage: UNK UNK, UNKNOWN FREQ.
     Route: 065
  5. GRANULOKINE [Concomitant]
     Active Substance: FILGRASTIM
     Indication: PRODUCT USED FOR UNKNOWN INDICATION
     Dosage: UNK UNK, UNKNOWN FREQ.
     Route: 065
  6. AMBISOME [Suspect]
     Active Substance: AMPHOTERICIN B
     Indication: FUNGAEMIA
     Dosage: 0.5 MG/KG, QD
     Route: 065
  7. CEFEPIME [Concomitant]
     Active Substance: CEFEPIME HYDROCHLORIDE
     Indication: PRODUCT USED FOR UNKNOWN INDICATION
     Dosage: UNK UNK, UNKNOWN FREQ.
     Route: 065
  8. AMBISOME [Suspect]
     Active Substance: AMPHOTERICIN B
     Dosage: 5.5 MG/KG, QD
     Route: 065
  9. CEFTRIAXONE. [Concomitant]
     Active Substance: CEFTRIAXONE
     Indication: PRODUCT USED FOR UNKNOWN INDICATION
     Dosage: UNK UNK, UNKNOWN FREQ.
     Route: 065
  10. OXACILLIN [Concomitant]
     Active Substance: OXACILLIN SODIUM
     Indication: PRODUCT USED FOR UNKNOWN INDICATION
     Dosage: UNK UNK, UNKNOWN FREQ.
     Route: 065
  11. AMBISOME [Suspect]
     Active Substance: AMPHOTERICIN B
     Dosage: 1.5 MG/KG, QD
     Route: 065
  12. AMBISOME [Suspect]
     Active Substance: AMPHOTERICIN B
     Dosage: 3.5 MG/KG, QD
     Route: 065
  13. VANCOMYCIN [Concomitant]
     Active Substance: VANCOMYCIN
     Indication: PRODUCT USED FOR UNKNOWN INDICATION
     Dosage: UNK UNK, UNKNOWN FREQ.
     Route: 065

REACTIONS (2)
  - Off label use [Unknown]
  - Drug ineffective [Fatal]
